FAERS Safety Report 12504069 (Version 1)
Quarter: 2016Q2

REPORT INFORMATION
  Report Type: Spontaneous
  Country: US (occurrence: US)
  Receive Date: 20160628
  Receipt Date: 20160628
  Transmission Date: 20160815
  Serious: Yes (Other)
  Sender: FDA-Public Use
  Company Number: US-THE MEDICINES COMPANY-US-MDCO-16-00227

PATIENT
  Age: 62 Year
  Sex: Female

DRUGS (5)
  1. ERTAPENEM [Concomitant]
     Active Substance: ERTAPENEM
     Indication: OSTEOMYELITIS
     Dosage: NOT REPORTED
  2. ERTAPENEM [Concomitant]
     Active Substance: ERTAPENEM
     Dosage: NOT REPORTED
  3. ORBACTIV [Suspect]
     Active Substance: ORITAVANCIN
     Dates: start: 20160225
  4. ORBACTIV [Suspect]
     Active Substance: ORITAVANCIN
     Indication: OSTEOMYELITIS
     Dates: end: 20150325
  5. ERTAPENEM [Concomitant]
     Active Substance: ERTAPENEM

REACTIONS (3)
  - Off label use [Unknown]
  - Anaemia [Recovering/Resolving]
  - Leukopenia [Recovering/Resolving]
